FAERS Safety Report 6552409-8 (Version None)
Quarter: 2010Q1

REPORT INFORMATION
  Report Type: 
  Country: None (occurrence: None)
  Receive Date: 20100126
  Receipt Date: 20100115
  Transmission Date: 20100710
  Serious: No
  Sender: FDA-Public Use
  Company Number: US-BAXTER-2009BH011000

PATIENT
  Age: 45 Year
  Sex: Male
  Weight: 102 kg

DRUGS (1)
  1. HEPARIN SODIUM INJECTION [Suspect]
     Indication: DRUG USE FOR UNKNOWN INDICATION
     Route: 065
     Dates: start: 20080130

REACTIONS (1)
  - ADVERSE EVENT [None]
